FAERS Safety Report 8374918-1 (Version None)
Quarter: 2012Q2

REPORT INFORMATION
  Report Type: 
  Country: None (occurrence: None)
  Receive Date: 20120521
  Receipt Date: 20120515
  Transmission Date: 20120825
  Serious: Yes (Other)
  Sender: FDA-Public Use
  Company Number: US-AMGEN-USASP2011056620

PATIENT
  Age: 72 Year
  Sex: Female

DRUGS (2)
  1. ENBREL [Suspect]
     Indication: RHEUMATOID ARTHRITIS
     Dosage: 50 MG, QWK
     Dates: start: 20090301
  2. ENBREL [Suspect]
     Dosage: 50 MG, QWK
     Dates: start: 20090801

REACTIONS (5)
  - RENAL IMPAIRMENT [None]
  - BLOOD POTASSIUM INCREASED [None]
  - BLOOD CREATININE INCREASED [None]
  - DYSPNOEA [None]
  - RHEUMATOID ARTHRITIS [None]
